FAERS Safety Report 12740497 (Version 2)
Quarter: 2018Q4

REPORT INFORMATION
  Report Type: Report from Study
  Country: US (occurrence: US)
  Receive Date: 20160913
  Receipt Date: 20181126
  Transmission Date: 20190204
  Serious: No
  Sender: FDA-Public Use
  Company Number: US-AMGEN-USASL2016116632

PATIENT
  Age: 56 Year
  Sex: Male

DRUGS (2)
  1. ENBREL [Suspect]
     Active Substance: ETANERCEPT
     Indication: RHEUMATOID ARTHRITIS
     Dosage: 50 MG, QWK
     Route: 065
  2. ENBREL [Suspect]
     Active Substance: ETANERCEPT
     Dosage: 50 MG, UNK (ONCE EVERY 2 MONTHS, SOMETIMES MORE OR LESS)
     Route: 065
     Dates: start: 2018

REACTIONS (3)
  - Off label use [Unknown]
  - Intentional product misuse [Unknown]
  - Muscle spasms [Recovered/Resolved]
